FAERS Safety Report 8282160-8 (Version None)
Quarter: 2012Q2

REPORT INFORMATION
  Report Type: 
  Country: None (occurrence: None)
  Receive Date: 20120413
  Receipt Date: 20120409
  Transmission Date: 20120825
  Serious: Yes (Other)
  Sender: FDA-Public Use
  Company Number: PHEH2012US003529

PATIENT
  Sex: Female
  Weight: 95.238 kg

DRUGS (2)
  1. GILENYA [Suspect]
     Indication: MULTIPLE SCLEROSIS
     Dosage: 0.5 MG, QD
     Route: 048
     Dates: start: 20111129, end: 20120210
  2. GILENYA [Suspect]
     Dosage: 0.5 MG, QOD
     Route: 048
     Dates: end: 20120222

REACTIONS (12)
  - PURULENT DISCHARGE [None]
  - LOCAL SWELLING [None]
  - HYPOAESTHESIA [None]
  - PALPITATIONS [None]
  - OEDEMA PERIPHERAL [None]
  - ANXIETY [None]
  - GENITAL RASH [None]
  - INAPPROPRIATE SCHEDULE OF DRUG ADMINISTRATION [None]
  - LOCALISED INFECTION [None]
  - IMPAIRED HEALING [None]
  - FEELING HOT [None]
  - PAIN IN EXTREMITY [None]
